FAERS Safety Report 17080444 (Version 1)
Quarter: 2019Q4

REPORT INFORMATION
  Report Type: Spontaneous
  Country: US (occurrence: US)
  Receive Date: 20191029
  Receipt Date: 20191029
  Transmission Date: 20200122
  Serious: No
  Sender: FDA-Public Use
  Company Number: None

PATIENT
  Age: 38 Year
  Sex: Female

DRUGS (1)
  1. COSENTYX [Suspect]
     Active Substance: SECUKINUMAB
     Dosage: ?          OTHER DOSE:1 INJECTION;OTHER FREQUENCY:OTHER;?
     Route: 058
     Dates: start: 201910

REACTIONS (2)
  - Periorbital swelling [None]
  - Nasopharyngitis [None]

NARRATIVE: CASE EVENT DATE: 20191029
